FAERS Safety Report 21279830 (Version 1)
Quarter: 2022Q3

REPORT INFORMATION
  Report Type: Spontaneous
  Country: MX (occurrence: None)
  Receive Date: 20220901
  Receipt Date: 20220901
  Transmission Date: 20221027
  Serious: Yes (Other)
  Sender: FDA-Public Use
  Company Number: MX-ROCHE-3171853

PATIENT
  Sex: Female

DRUGS (1)
  1. TRASTUZUMAB [Suspect]
     Active Substance: TRASTUZUMAB
     Indication: Breast cancer
     Dosage: DOSE WAS NOT REPORTED
     Route: 065

REACTIONS (2)
  - Metastases to spine [Not Recovered/Not Resolved]
  - Metastases to central nervous system [Not Recovered/Not Resolved]
